FAERS Safety Report 4973604-5 (Version None)
Quarter: 2006Q2

REPORT INFORMATION
  Report Type: 
  Country: None (occurrence: None)
  Receive Date: 20060414
  Receipt Date: 20051204
  Transmission Date: 20061013
  Serious: Yes (Hospitalization, Other)
  Sender: FDA-Public Use
  Company Number: NLWYE208406DEC05

PATIENT
  Age: 9 Year
  Sex: Female

DRUGS (9)
  1. ENBREL [Suspect]
     Indication: JUVENILE ARTHRITIS
     Route: 058
     Dates: start: 20051106
  2. NEORAL [Concomitant]
  3. INDOMETHACIN [Concomitant]
     Dates: start: 19980101
  4. CETIRIZINE HCL [Concomitant]
  5. PARACETAMOL [Concomitant]
  6. PREDNISONE TAB [Concomitant]
  7. FISH OIL, HYDROGENATED [Concomitant]
  8. ECHINACEA EXTRACT [Concomitant]
  9. LOSEC [Concomitant]

REACTIONS (3)
  - EPILEPSY [None]
  - FATIGUE [None]
  - NAUSEA [None]
